FAERS Safety Report 10930685 (Version 1)
Quarter: 2015Q1

REPORT INFORMATION
  Report Type: Spontaneous
  Country: NL (occurrence: NL)
  Receive Date: 20150319
  Receipt Date: 20150319
  Transmission Date: 20150721
  Serious: Yes (Other)
  Sender: FDA-Public Use
  Company Number: NL-WATSON-2015-05118

PATIENT
  Age: 26 Year
  Sex: Female

DRUGS (3)
  1. VENLAFAXINE [Concomitant]
     Active Substance: VENLAFAXINE HYDROCHLORIDE
     Indication: PRODUCT USED FOR UNKNOWN INDICATION
     Dosage: 75 MG, DAILY 1 KEER PER DAG 1 STUK(S) (1 TIME PER DAY 1 PIECE (S))
     Route: 048
     Dates: start: 20121127
  2. METRONIDAZOLE. [Suspect]
     Active Substance: METRONIDAZOLE
     Indication: PRODUCT USED FOR UNKNOWN INDICATION
     Dosage: 500 MG, BID; 2 KEER PER DAG 1 STUK(S) (2 TIMES A DAY 1 PIECE (S))
     Route: 048
     Dates: start: 20141209
  3. QLAIRA [Concomitant]
     Active Substance: DIENOGEST\ESTRADIOL VALERATE
     Indication: PRODUCT USED FOR UNKNOWN INDICATION
     Dosage: 1 DF, DAILY 1 KEER PER DAG 1 STUK(S) (1 TIME PER DAY 1 PIECE (S))
     Route: 048
     Dates: start: 20110125

REACTIONS (5)
  - Nausea [Unknown]
  - Dizziness [Unknown]
  - Pain in extremity [Unknown]
  - Arthralgia [Unknown]
  - Vision blurred [Unknown]

NARRATIVE: CASE EVENT DATE: 20141209
